FAERS Safety Report 5036853-6 (Version None)
Quarter: 2006Q2

REPORT INFORMATION
  Report Type: 
  Country: None (occurrence: None)
  Receive Date: 20060622
  Receipt Date: 20060616
  Transmission Date: 20061013
  Serious: Yes (Death, Hospitalization, Other)
  Sender: FDA-Public Use
  Company Number: 200512722BWH

PATIENT
  Age: 54 Year
  Sex: Female

DRUGS (5)
  1. SORAFENIB [Suspect]
     Indication: METASTATIC MALIGNANT MELANOMA
     Dosage: 400 MG, BID, ORAL
     Route: 048
     Dates: start: 20050921
  2. TEMOZOLOMIDE [Suspect]
     Dates: start: 20050928
  3. ANTIBIOTICS [Concomitant]
  4. LOVENOX [Concomitant]
  5. COUMADIN [Concomitant]

REACTIONS (5)
  - CARDIAC DISORDER [None]
  - ESCHERICHIA INFECTION [None]
  - HAEMOGLOBIN DECREASED [None]
  - IMPAIRED HEALING [None]
  - WOUND INFECTION BACTERIAL [None]
